FAERS Safety Report 20589611 (Version 6)
Quarter: 2023Q4

REPORT INFORMATION
  Report Type: Other
  Country: DE (occurrence: None)
  Receive Date: 20220314
  Receipt Date: 20231006
  Transmission Date: 20240109
  Serious: No
  Sender: FDA-Public Use
  Company Number: DE-ROCHE-2833665

PATIENT
  Age: 33 Year
  Sex: Female

DRUGS (5)
  1. OCREVUS [Suspect]
     Active Substance: OCRELIZUMAB
     Indication: Secondary progressive multiple sclerosis
     Route: 042
     Dates: start: 20190301, end: 20211111
  2. COMIRNATY (TOZINAMERAN) [Suspect]
     Active Substance: TOZINAMERAN
     Indication: Product used for unknown indication
     Route: 065
  3. PROPIVERINE [Concomitant]
     Active Substance: PROPIVERINE
  4. VITAMIN D3 [Concomitant]
     Active Substance: CHOLECALCIFEROL
  5. TIMO COMOD [Concomitant]

REACTIONS (7)
  - Off label use [Unknown]
  - Fatigue [Recovered/Resolved]
  - Depression [Recovering/Resolving]
  - SARS-CoV-2 antibody test negative [Recovered/Resolved]
  - Glaucoma [Unknown]
  - COVID-19 [Recovered/Resolved]
  - Cystitis [Recovered/Resolved]

NARRATIVE: CASE EVENT DATE: 20190301
